FAERS Safety Report 22658904 (Version 2)
Quarter: 2024Q4

REPORT INFORMATION
  Report Type: Report from Study
  Country: BR (occurrence: BR)
  Receive Date: 20230630
  Receipt Date: 20241219
  Transmission Date: 20250115
  Serious: Yes (Disabling, Other)
  Sender: CELLTRION
  Company Number: BR-CELLTRION INC.-2022BR016091

PATIENT

DRUGS (4)
  1. INFLIXIMAB-DYYB [Suspect]
     Active Substance: INFLIXIMAB-DYYB
     Indication: Rheumatoid arthritis
     Dosage: 3 AMPOULES OF 10 MG EVERY 8 WEEKS
     Route: 042
  2. INFLIXIMAB-DYYB [Suspect]
     Active Substance: INFLIXIMAB-DYYB
     Dosage: 3 AMPOULOES EVERY 2 MONTHS
     Route: 042
     Dates: start: 20230423
  3. NIMESULIDE [Concomitant]
     Active Substance: NIMESULIDE
     Indication: Arthritis
     Dosage: WHEN DON^T GETS THE REMSIMA
     Route: 048
  4. PANTOPRAZOLE [Concomitant]
     Active Substance: PANTOPRAZOLE
     Indication: Gastritis
     Dosage: 1 CAPSULE / DAY
     Route: 048

REACTIONS (9)
  - Grip strength decreased [Recovering/Resolving]
  - Rheumatoid arthritis [Recovering/Resolving]
  - Symptom recurrence [Recovering/Resolving]
  - Pain [Unknown]
  - Pyrexia [Recovering/Resolving]
  - Product availability issue [Unknown]
  - Product distribution issue [Unknown]
  - Therapy interrupted [Unknown]
  - Therapy interrupted [Unknown]
